FAERS Safety Report 4901161-8 (Version None)
Quarter: 2006Q1

REPORT INFORMATION
  Report Type: 
  Country: None (occurrence: None)
  Receive Date: 20060131
  Receipt Date: 20060120
  Transmission Date: 20060701
  Serious: Yes (Hospitalization)
  Sender: FDA-Public Use
  Company Number: HQWYE458923JAN06

PATIENT
  Age: 34 Year
  Sex: Female

DRUGS (15)
  1. RAPAMUNE [Suspect]
     Indication: PROPHYLAXIS AGAINST TRANSPLANT REJECTION
     Dosage: INITIATED AT 3 MG/DAY; DOSE THEN VARIED ACCORDING TO TROUGH LEVELS (9-3 MG), ORAL
     Route: 048
     Dates: start: 20030320, end: 20030703
  2. MYCOPHENOLATE MOFETIL (MYCOPHENOLATE MOFETIL, ) [Suspect]
     Indication: PROPHYLAXIS AGAINST TRANSPLANT REJECTION
     Dosage: 1500 MG 1X PER 1 DAY, ORAL; SEE IMAGE
     Route: 048
     Dates: start: 20030317, end: 20030317
  3. MYCOPHENOLATE MOFETIL (MYCOPHENOLATE MOFETIL, ) [Suspect]
     Indication: PROPHYLAXIS AGAINST TRANSPLANT REJECTION
     Dosage: 1500 MG 1X PER 1 DAY, ORAL; SEE IMAGE
     Route: 048
     Dates: start: 20030318, end: 20030508
  4. MYCOPHENOLATE MOFETIL (MYCOPHENOLATE MOFETIL, ) [Suspect]
     Indication: PROPHYLAXIS AGAINST TRANSPLANT REJECTION
     Dosage: 1500 MG 1X PER 1 DAY, ORAL; SEE IMAGE
     Route: 048
     Dates: start: 20030510, end: 20030702
  5. MYCOPHENOLATE MOFETIL (MYCOPHENOLATE MOFETIL, ) [Suspect]
     Indication: PROPHYLAXIS AGAINST TRANSPLANT REJECTION
     Dosage: 1500 MG 1X PER 1 DAY, ORAL; SEE IMAGE
     Route: 048
     Dates: start: 20030703, end: 20030804
  6. MYCOPHENOLATE MOFETIL (MYCOPHENOLATE MOFETIL, ) [Suspect]
     Indication: PROPHYLAXIS AGAINST TRANSPLANT REJECTION
     Dosage: 1500 MG 1X PER 1 DAY, ORAL; SEE IMAGE
     Route: 048
     Dates: start: 20030805
  7. PREDNISOLONE [Suspect]
     Indication: PROPHYLAXIS AGAINST TRANSPLANT REJECTION
     Dosage: VARY DOSE-75 MG TO 15 MG/DAILY ORAL; SEE IMAGE
     Route: 048
     Dates: start: 20030317, end: 20030325
  8. PREDNISOLONE [Suspect]
     Indication: PROPHYLAXIS AGAINST TRANSPLANT REJECTION
     Dosage: VARY DOSE-75 MG TO 15 MG/DAILY ORAL; SEE IMAGE
     Route: 048
     Dates: start: 20030326, end: 20030513
  9. PREDNISOLONE [Suspect]
     Indication: PROPHYLAXIS AGAINST TRANSPLANT REJECTION
     Dosage: VARY DOSE-75 MG TO 15 MG/DAILY ORAL; SEE IMAGE
     Route: 048
     Dates: start: 20030702, end: 20030702
  10. PREDNISOLONE [Suspect]
     Indication: PROPHYLAXIS AGAINST TRANSPLANT REJECTION
     Dosage: VARY DOSE-75 MG TO 15 MG/DAILY ORAL; SEE IMAGE
     Route: 048
     Dates: start: 20030514
  11. PREDNISOLONE [Suspect]
     Indication: PROPHYLAXIS AGAINST TRANSPLANT REJECTION
     Dosage: VARY DOSE-75 MG TO 15 MG/DAILY ORAL; SEE IMAGE
     Route: 048
     Dates: start: 20030704
  12. ZENAPAX [Concomitant]
  13. NYSTATIN [Concomitant]
  14. AMLODIPINE [Concomitant]
  15. AMPHOTERICIN B [Concomitant]

REACTIONS (5)
  - CYSTITIS [None]
  - NEPHROCALCINOSIS [None]
  - URETERAL NECROSIS [None]
  - URINOMA [None]
  - VESICAL FISTULA [None]
